FAERS Safety Report 7319793-9 (Version None)
Quarter: 2011Q1

REPORT INFORMATION
  Report Type: 
  Country: None (occurrence: None)
  Receive Date: 20110228
  Receipt Date: 20100930
  Transmission Date: 20110831
  Serious: No
  Sender: FDA-Public Use
  Company Number: A0884234A

PATIENT
  Age: 33 Year
  Sex: Female

DRUGS (2)
  1. LAMICTAL [Suspect]
     Indication: BIPOLAR DISORDER
     Route: 048
     Dates: start: 20100902
  2. NO CONCURRENT MEDICATION [Concomitant]

REACTIONS (5)
  - SOMNOLENCE [None]
  - FATIGUE [None]
  - EYE DISORDER [None]
  - THERAPEUTIC RESPONSE UNEXPECTED [None]
  - EYE IRRITATION [None]
